FAERS Safety Report 15296572 (Version 2)
Quarter: 2020Q3

REPORT INFORMATION
  Report Type: Spontaneous
  Country: AU (occurrence: AU)
  Receive Date: 20180820
  Receipt Date: 20200918
  Transmission Date: 20201102
  Serious: Yes (Other)
  Sender: FDA-Public Use
  Company Number: AU-BRISTOL-MYERS SQUIBB COMPANY-BMS-2018-075095

PATIENT
  Age: 40 Year
  Sex: Female

DRUGS (2)
  1. HYDREA [Suspect]
     Active Substance: HYDROXYUREA
     Indication: ESSENTIAL THROMBOCYTHAEMIA
     Dosage: 500 MG, QD
     Route: 048
     Dates: start: 201807
  2. HYDREA [Suspect]
     Active Substance: HYDROXYUREA
     Indication: BONE CANCER
     Dosage: 1000 MG, QD
     Route: 048
     Dates: start: 20180806

REACTIONS (12)
  - Influenza like illness [Unknown]
  - Vomiting [Unknown]
  - Pain in jaw [Unknown]
  - Back pain [Unknown]
  - Gingival pain [Unknown]
  - Nausea [Unknown]
  - Diarrhoea [Unknown]
  - Product dose omission issue [Unknown]
  - Rheumatoid arthritis [Unknown]
  - Arthralgia [Unknown]
  - Pyrexia [Unknown]
  - Toothache [Unknown]

NARRATIVE: CASE EVENT DATE: 20180808
